FAERS Safety Report 10566406 (Version 1)
Quarter: 2014Q4

REPORT INFORMATION
  Report Type: Spontaneous
  Country: DK (occurrence: FR)
  Receive Date: 20141105
  Receipt Date: 20141105
  Transmission Date: 20150529
  Serious: Yes (Hospitalization)
  Sender: FDA-Public Use
  Company Number: FR-FRI-1000072053

PATIENT
  Age: 90 Year
  Sex: Male

DRUGS (16)
  1. LORAZEPAM. [Suspect]
     Active Substance: LORAZEPAM
     Dosage: 0.5 DF
     Route: 048
     Dates: end: 20140619
  2. LOVENOX [Concomitant]
     Active Substance: ENOXAPARIN SODIUM
     Dosage: 8000 IU/0.8 ML DAILY
     Route: 058
     Dates: start: 20140613, end: 20140614
  3. LASILIX RETARD [Concomitant]
     Active Substance: FUROSEMIDE
     Dosage: 1 DF
     Route: 048
  4. RAMIPRIL. [Concomitant]
     Active Substance: RAMIPRIL
     Dosage: 1 DF
     Route: 048
     Dates: end: 20140619
  5. ESCITALOPRAM [Suspect]
     Active Substance: ESCITALOPRAM OXALATE
     Dosage: 1 DF
     Route: 048
     Dates: start: 20140618, end: 20140619
  6. LAMALINE [Concomitant]
     Active Substance: ACETAMINOPHEN\CAFFEINE\OPIUM
     Indication: PAIN
     Dosage: IF PAIN 4 DF DAILY
  7. AUGMENTIN [Concomitant]
     Active Substance: AMOXICILLIN\CLAVULANATE POTASSIUM
     Dosage: 2 GRAMS THEN 3 GRAMS DAILY
     Dates: start: 20140613, end: 20140704
  8. SOTALOL. [Concomitant]
     Active Substance: SOTALOL
     Dosage: 0.5 DF
     Route: 048
     Dates: end: 20140619
  9. TRANXENE T-TAB [Suspect]
     Active Substance: CLORAZEPATE DIPOTASSIUM
     Dosage: 2 DF
     Route: 048
     Dates: start: 20140618, end: 20140619
  10. RISPERDAL [Concomitant]
     Active Substance: RISPERIDONE
     Dosage: 0.5 DF
     Route: 048
     Dates: start: 20140617, end: 20140618
  11. ALLOPURINOL. [Concomitant]
     Active Substance: ALLOPURINOL
     Dosage: 1 DF
     Route: 048
  12. URAPIDIL [Concomitant]
     Active Substance: URAPIDIL
     Dosage: 2 DF
     Route: 048
  13. PANTOPRAZOLE [Concomitant]
     Active Substance: PANTOPRAZOLE SODIUM
     Dosage: 1 DF
  14. MEMANTINE [Suspect]
     Active Substance: MEMANTINE
     Indication: DEMENTIA ALZHEIMER^S TYPE
     Dosage: 1 DF
     Route: 048
     Dates: start: 20140618
  15. COUMADINE [Concomitant]
     Active Substance: WARFARIN SODIUM
     Dosage: 1 DF
     Route: 048
  16. NICORANDIL [Concomitant]
     Active Substance: NICORANDIL
     Dosage: 2 DF
     Route: 048

REACTIONS (2)
  - Depressed level of consciousness [Recovered/Resolved]
  - Somnolence [Recovered/Resolved]

NARRATIVE: CASE EVENT DATE: 20140619
